FAERS Safety Report 6758024-5 (Version None)
Quarter: 2010Q2

REPORT INFORMATION
  Report Type: 
  Country: None (occurrence: None)
  Receive Date: 20100607
  Receipt Date: 20100525
  Transmission Date: 20101027
  Serious: Yes (Other)
  Sender: FDA-Public Use
  Company Number: ES-ELI_LILLY_AND_COMPANY-ES201005006942

PATIENT
  Sex: Female
  Weight: 62 kg

DRUGS (13)
  1. FORTEO [Suspect]
     Indication: OSTEOPOROSIS
     Dosage: 20 UG, DAILY (1/D)
     Route: 058
     Dates: start: 20090204
  2. ASPIRIN [Concomitant]
     Indication: ANGIOPATHY
     Dosage: 150 MG, DAILY (1/D)
     Route: 048
  3. OMEPRAZOLE [Concomitant]
     Indication: PROPHYLAXIS
     Dosage: 20 MG, UNK
     Route: 048
  4. METOTREXATO [Concomitant]
     Indication: RHEUMATOID ARTHRITIS
     Dosage: 6 D/F, DAILY (1/D)
     Route: 048
  5. ACFOL [Concomitant]
     Indication: MALABSORPTION
     Dosage: 5 MG, DAILY (1/D)
  6. MYOLASTAN [Concomitant]
     Indication: HYPOTONIA
     Dosage: 50 MG, DAILY (1/D)
  7. CITALOPRAM [Concomitant]
     Dosage: 20 MG, HALF
  8. FOSAVANCE [Concomitant]
     Indication: OSTEOPOROSIS
     Dosage: 70 MG, WEEKLY (1/W)
  9. INSULATARD [Concomitant]
     Indication: DIABETES MELLITUS
     Dosage: 22 U, DAILY (1/D)
     Route: 058
  10. FENTANILO [Concomitant]
     Indication: PAIN
     Dosage: 50 UG, TWICE WEEKLY
     Route: 062
  11. MOTILIUM [Concomitant]
     Indication: PROPHYLAXIS
     Dosage: 10 MG, 2/D
     Route: 048
  12. ALOPURINOL [Concomitant]
     Indication: URINE ABNORMALITY
     Dosage: 100 MG, DAILY (1/D)
     Route: 048
  13. CAPTOPRIL [Concomitant]
     Indication: HYPERTENSION
     Dosage: 50 MG, 2/D
     Route: 048

REACTIONS (3)
  - FALL [None]
  - HUMERUS FRACTURE [None]
  - PAIN IN EXTREMITY [None]
